FAERS Safety Report 4976752-9 (Version None)
Quarter: 2006Q2

REPORT INFORMATION
  Report Type: 
  Country: None (occurrence: None)
  Receive Date: 20060419
  Receipt Date: 20050519
  Transmission Date: 20061013
  Serious: Yes (Death)
  Sender: FDA-Public Use
  Company Number: US-GLAXOSMITHKLINE-A0559966A

PATIENT
  Age: 42 Year
  Sex: Female
  Weight: 56.8 kg

DRUGS (3)
  1. PAXIL CR [Suspect]
     Route: 048
     Dates: start: 20031115
  2. XANAX [Concomitant]
  3. ATIVAN [Concomitant]

REACTIONS (3)
  - COMPLETED SUICIDE [None]
  - INJURY ASPHYXIATION [None]
  - INSOMNIA [None]
